FAERS Safety Report 7589783-X (Version None)
Quarter: 2011Q3

REPORT INFORMATION
  Report Type: 
  Country: None (occurrence: None)
  Receive Date: 20110705
  Receipt Date: 20110628
  Transmission Date: 20111222
  Serious: Yes (Other)
  Sender: FDA-Public Use
  Company Number: B0730836A

PATIENT
  Age: 33 Year
  Sex: Female
  Weight: 79 kg

DRUGS (1)
  1. ALLI [Suspect]
     Indication: OBESITY
     Route: 048

REACTIONS (2)
  - ABDOMINAL RIGIDITY [None]
  - STEATORRHOEA [None]
